FAERS Safety Report 11157989 (Version 1)
Quarter: 2015Q2

REPORT INFORMATION
  Report Type: Report from Study
  Country: US (occurrence: US)
  Receive Date: 20150603
  Receipt Date: 20150603
  Transmission Date: 20150821
  Serious: Yes (Other)
  Sender: FDA-Public Use
  Company Number: US-CELGENE-USA-2015055223

PATIENT
  Age: 72 Year
  Sex: Male
  Weight: 67.58 kg

DRUGS (3)
  1. DEXAMETHASONE. [Concomitant]
     Active Substance: DEXAMETHASONE
     Indication: PLASMA CELL MYELOMA
     Route: 065
     Dates: start: 20141001
  2. REVLIMID [Suspect]
     Active Substance: LENALIDOMIDE
     Indication: PLASMA CELL MYELOMA
     Route: 048
     Dates: start: 20141001
  3. BORTEZOMIB [Concomitant]
     Active Substance: BORTEZOMIB
     Indication: PLASMA CELL MYELOMA
     Route: 065
     Dates: start: 20141001

REACTIONS (22)
  - Anxiety [Unknown]
  - Pain [Unknown]
  - Weight decreased [Unknown]
  - Rash [Unknown]
  - Rhinorrhoea [Unknown]
  - Neuropathy peripheral [Unknown]
  - Arthralgia [Unknown]
  - Bone pain [Unknown]
  - Influenza [Unknown]
  - Decreased appetite [Unknown]
  - Nausea [Unknown]
  - Haemorrhage [Unknown]
  - Pyrexia [Unknown]
  - Myalgia [Unknown]
  - Night sweats [Unknown]
  - Dyspnoea [Unknown]
  - Headache [Unknown]
  - Contusion [Unknown]
  - Dizziness [Unknown]
  - Chills [Unknown]
  - Diarrhoea [Unknown]
  - Vomiting [Unknown]

NARRATIVE: CASE EVENT DATE: 20150301
